FAERS Safety Report 9649307 (Version 2)
Quarter: 2013Q4

REPORT INFORMATION
  Report Type: Report from Study
  Country: BR (occurrence: BR)
  Receive Date: 20131028
  Receipt Date: 20131126
  Transmission Date: 20140711
  Serious: Yes (Other)
  Sender: FDA-Public Use
  Company Number: PHHY2013BR120764

PATIENT
  Sex: Male

DRUGS (1)
  1. STARLIX [Suspect]
     Dosage: UNK UKN, UNK
     Dates: end: 201308

REACTIONS (7)
  - Cerebrovascular accident [Recovering/Resolving]
  - Pneumonia [Recovering/Resolving]
  - Pulmonary oedema [Recovering/Resolving]
  - Diabetes mellitus [Recovering/Resolving]
  - Hypertension [Recovering/Resolving]
  - Blood cholesterol abnormal [Unknown]
  - Drug ineffective [Unknown]
